FAERS Safety Report 7530471-3 (Version None)
Quarter: 2011Q2

REPORT INFORMATION
  Report Type: 
  Country: None (occurrence: None)
  Receive Date: 20110607
  Receipt Date: 20110527
  Transmission Date: 20111010
  Serious: Yes (Other)
  Sender: FDA-Public Use
  Company Number: IT-BAYER-2011-046225

PATIENT
  Age: 16 Year
  Sex: Female

DRUGS (5)
  1. ASPIRINA CON VITAMINA C [Suspect]
     Dosage: DAILY DOSE 640 MG
     Route: 048
     Dates: start: 20110518, end: 20110518
  2. PREDNISONE [Concomitant]
  3. LUCEN [Concomitant]
  4. RUPATADINE [Concomitant]
  5. ENTEROGERMINA [Concomitant]

REACTIONS (3)
  - URTICARIA [None]
  - HYPERSENSITIVITY [None]
  - ANGIOEDEMA [None]
